FAERS Safety Report 5115176-0 (Version None)
Quarter: 2006Q3

REPORT INFORMATION
  Report Type: 
  Country: None (occurrence: None)
  Receive Date: 20060925
  Receipt Date: 20060925
  Transmission Date: 20061208
  Serious: Yes (Life-Threatening)
  Sender: FDA-Public Use
  Company Number: None

PATIENT
  Sex: Female
  Weight: 45.3597 kg

DRUGS (6)
  1. KETEK [Suspect]
     Indication: BRONCHITIS ACUTE
     Dosage: 800 MG   DAILY   PO
     Route: 048
     Dates: start: 20060918, end: 20060920
  2. XANAX [Concomitant]
  3. NEXIUM [Concomitant]
  4. MULTIVITAMAN [Concomitant]
  5. LORTAB [Concomitant]
  6. FLEXERIL [Concomitant]

REACTIONS (1)
  - LIVER FUNCTION TEST ABNORMAL [None]
